FAERS Safety Report 22055314 (Version 1)
Quarter: 2023Q1

REPORT INFORMATION
  Report Type: Spontaneous
  Country: US (occurrence: None)
  Receive Date: 20230301
  Receipt Date: 20230301
  Transmission Date: 20230418
  Serious: Yes (Life-Threatening, Hospitalization)
  Sender: FDA-Public Use
  Company Number: None

PATIENT
  Age: 11 Year
  Sex: Female
  Weight: 27 kg

DRUGS (4)
  1. FLUOXETINE [Suspect]
     Active Substance: FLUOXETINE HYDROCHLORIDE
     Indication: Depression
     Dosage: OTHER QUANTITY : 2.5 ML;?FREQUENCY : DAILY;?
     Route: 048
     Dates: start: 20221227, end: 20230213
  2. MIRTAZAPINE [Concomitant]
     Active Substance: MIRTAZAPINE
  3. VITAMINS [Concomitant]
     Active Substance: VITAMINS
  4. iron supplement (45 mg) [Concomitant]

REACTIONS (5)
  - Suicidal ideation [None]
  - Abnormal dreams [None]
  - Sleep disorder [None]
  - Drug ineffective [None]
  - CYP2D6 polymorphism [None]

NARRATIVE: CASE EVENT DATE: 20230112
